FAERS Safety Report 11375907 (Version 1)
Quarter: 2015Q3

REPORT INFORMATION
  Report Type: Report from Study
  Country: US (occurrence: US)
  Receive Date: 20150813
  Receipt Date: 20150813
  Transmission Date: 20151125
  Serious: No
  Sender: FDA-Public Use
  Company Number: US-CELGENEUS-USA-2015072771

PATIENT

DRUGS (2)
  1. THALOMID [Suspect]
     Active Substance: THALIDOMIDE
     Indication: PRODUCT USED FOR UNKNOWN INDICATION
     Dosage: 200 MILLIGRAM
     Route: 048
  2. STEROIDS [Suspect]
     Active Substance: UNSPECIFIED INGREDIENT
     Indication: PRODUCT USED FOR UNKNOWN INDICATION
     Route: 065

REACTIONS (9)
  - Ageusia [Unknown]
  - Hypoaesthesia [Unknown]
  - Cold sweat [Unknown]
  - Adverse drug reaction [Unknown]
  - Fatigue [Unknown]
  - Constipation [Unknown]
  - Feeling hot [Unknown]
  - Dizziness [Unknown]
  - Abdominal distension [Unknown]
